FAERS Safety Report 9106523 (Version 2)
Quarter: 2013Q1

REPORT INFORMATION
  Report Type: Report from Study
  Country: US (occurrence: US)
  Receive Date: 20130221
  Receipt Date: 20130306
  Transmission Date: 20140127
  Serious: Yes (Hospitalization)
  Sender: FDA-Public Use
  Company Number: US-ACTELION-A-US2012-76876

PATIENT
  Age: 64 Year
  Sex: Female

DRUGS (4)
  1. VELETRI [Suspect]
     Indication: PULMONARY ARTERIAL HYPERTENSION
     Dosage: 30 NG/KG, PER MIN
     Route: 042
     Dates: start: 20121015
  2. COUMADIN [Concomitant]
  3. SILDENAFIL [Concomitant]
     Dosage: 2 UNK, UNK
  4. LASIX [Concomitant]

REACTIONS (5)
  - Abdominal wall abscess [Unknown]
  - Catheter site cellulitis [Recovering/Resolving]
  - Catheter site pain [Recovering/Resolving]
  - Medical device complication [Unknown]
  - Device dislocation [Unknown]
